FAERS Safety Report 7926765-X (Version None)
Quarter: 2011Q4

REPORT INFORMATION
  Report Type: 
  Country: None (occurrence: None)
  Receive Date: 20111118
  Receipt Date: 20100708
  Transmission Date: 20120403
  Serious: Yes (Hospitalization)
  Sender: FDA-Public Use
  Company Number: US-BAYER-200930977NA

PATIENT
  Age: 47 Year
  Sex: Female
  Weight: 63 kg

DRUGS (7)
  1. PORTIA-28 [Concomitant]
     Dates: start: 20040101, end: 20040101
  2. ANTIBIOTICS [Concomitant]
  3. DROSPIRENONE AND ETHINYL ESTRADIOL [Suspect]
     Indication: CONTRACEPTION
     Dosage: UNK
     Route: 048
  4. ONE A DAY [Concomitant]
  5. IBUPROFEN [Concomitant]
  6. YASMIN [Suspect]
     Indication: CONTRACEPTION
     Route: 048
     Dates: start: 20040301, end: 20080618
  7. YAZ [Suspect]
     Indication: PRODUCT USED FOR UNKNOWN INDICATION
     Route: 048
     Dates: start: 20040101, end: 20080101

REACTIONS (5)
  - OEDEMA PERIPHERAL [None]
  - SKIN DISCOLOURATION [None]
  - THORACIC OUTLET SYNDROME [None]
  - PARAESTHESIA [None]
  - PAGET-SCHROETTER SYNDROME [None]
